FAERS Safety Report 4483948-1 (Version None)
Quarter: 2004Q4

REPORT INFORMATION
  Report Type: 
  Country: None (occurrence: None)
  Receive Date: 20041021
  Receipt Date: 20041013
  Transmission Date: 20050328
  Serious: Yes (Other)
  Sender: FDA-Public Use
  Company Number: 2004239233US

PATIENT
  Age: 52 Year
  Sex: Male
  Weight: 76.2 kg

DRUGS (1)
  1. CELEBREX [Suspect]
     Indication: RHEUMATOID ARTHRITIS
     Dosage: 200 MG, TID, ORAL
     Route: 048
     Dates: start: 19991201, end: 20000201

REACTIONS (5)
  - ANAL FISSURE [None]
  - DIVERTICULITIS [None]
  - DYSPEPSIA [None]
  - RECTAL HAEMORRHAGE [None]
  - WEIGHT INCREASED [None]
